FAERS Safety Report 8531390-6 (Version None)
Quarter: 2012Q3

REPORT INFORMATION
  Report Type: 
  Country: None (occurrence: None)
  Receive Date: 20120723
  Receipt Date: 20120326
  Transmission Date: 20120928
  Serious: Yes (Hospitalization, Other)
  Sender: FDA-Public Use
  Company Number: FR-ASTRAZENECA-2012SE21220

PATIENT
  Age: 36 Year
  Sex: Male

DRUGS (7)
  1. VFEND [Suspect]
     Indication: ASPERGILLOSIS
     Route: 065
     Dates: start: 20120213, end: 20120224
  2. MEROPENEM [Suspect]
     Route: 042
     Dates: start: 20120215, end: 20120224
  3. VANCOMYCIN [Suspect]
     Route: 042
     Dates: start: 20120212, end: 20120220
  4. FASTURTEC [Concomitant]
     Dates: start: 20120127
  5. HYDREA [Concomitant]
     Dates: start: 20120127
  6. CANDIDAS [Concomitant]
     Dates: start: 20120215, end: 20120217
  7. TAZOBACTAM [Concomitant]
     Dates: start: 20120203, end: 20120217

REACTIONS (7)
  - OVERDOSE [None]
  - DERMATITIS EXFOLIATIVE [None]
  - SUBDURAL EFFUSION [None]
  - RASH MACULO-PAPULAR [None]
  - CENTRAL NERVOUS SYSTEM LESION [None]
  - COMA [None]
  - HYPOTENSION [None]
